FAERS Safety Report 7536229-3 (Version None)
Quarter: 2011Q2

REPORT INFORMATION
  Report Type: 
  Country: None (occurrence: None)
  Receive Date: 20110609
  Receipt Date: 20110527
  Transmission Date: 20111010
  Serious: Yes (Hospitalization)
  Sender: FDA-Public Use
  Company Number: FR-BAYER-2011-013872

PATIENT
  Age: 72 Year
  Sex: Male

DRUGS (16)
  1. ACETYLSALICYLATE LYSINE [Concomitant]
     Indication: BACK PAIN
     Dosage: 75 MG, QD
     Dates: start: 20100101
  2. PANADEINE CO [Concomitant]
     Indication: BACK PAIN
     Dosage: UNK
     Dates: start: 20100529, end: 20100822
  3. DI-GESIC [Concomitant]
     Indication: BACK PAIN
     Dosage: UNK
     Dates: start: 20101004
  4. PRAVASTATIN [Concomitant]
     Indication: DYSLIPIDAEMIA
     Dosage: 40 MG, QD
     Dates: start: 20000101
  5. DEXERYL [GLYCEROL,PARAFFIN, LIQUID,WHITE SOFT PARAFFIN] [Concomitant]
     Indication: PROPHYLAXIS
     Dosage: 2 DOSAGE FORMS (1 DOSAGE FORM TWICE DAILY)
     Dates: start: 20100520
  6. ULTRACET [Concomitant]
     Indication: PAIN
     Dosage: 37.5 MG, BID
     Dates: start: 20100823, end: 20100827
  7. LACTULOSE [Concomitant]
     Indication: HEPATIC ENCEPHALOPATHY
     Dosage: 6 TABLETS (2 TABLETS THREE TIMES DAILY)
     Dates: start: 20101001
  8. LANSOPRAZOLE [Concomitant]
     Indication: DYSPEPSIA
     Dosage: 30 MG, QD
     Dates: start: 20100101
  9. INSULIN GLARGINE [Concomitant]
     Indication: DIABETES MELLITUS
     Dosage: 30 MG, 1 IN 1 D
     Dates: start: 20101001
  10. INSULIN HUMAN [Concomitant]
     Indication: DIABETES MELLITUS
     Dosage: 29 U, BID
     Dates: start: 20070101, end: 20100528
  11. LOPERAMIDE HYDROCHLORIDE [Concomitant]
     Indication: DIARRHOEA
     Dosage: 2 DOSAGE FORMS, AS REQUIRED
     Dates: start: 20100520
  12. INSULIN HUMAN [Concomitant]
     Dosage: 25 U, BID
     Dates: start: 20100529
  13. ISRADIPINE [Concomitant]
     Indication: HYPERTENSION
     Dosage: 5 (5 ONCE DAILY)
     Dates: start: 20100521
  14. SORAFENIB (RAF KINASE INHIBITOR) [Suspect]
     Indication: HEPATIC NEOPLASM MALIGNANT
     Dosage: 400 MG, BID
     Route: 048
     Dates: start: 20100520, end: 20101124
  15. METFORMIN HYDROCHLORIDE [Concomitant]
     Indication: DIABETES MELLITUS
     Dosage: 850 MG, TID
     Dates: start: 20000101, end: 20100926
  16. REPAGLINIDE [Concomitant]
     Indication: DIABETES MELLITUS
     Dosage: 4 MG, TID
     Dates: start: 20070101

REACTIONS (1)
  - HEPATIC ENCEPHALOPATHY [None]
